FAERS Safety Report 25064695 (Version 2)
Quarter: 2025Q3

REPORT INFORMATION
  Report Type: Spontaneous
  Country: GB (occurrence: GB)
  Receive Date: 20250311
  Receipt Date: 20250805
  Transmission Date: 20251020
  Serious: Yes (Other)
  Sender: VIIV
  Company Number: GB-VIIV HEALTHCARE-GB2025EME027059

PATIENT
  Age: 45 Year
  Sex: Male
  Weight: 95 kg

DRUGS (4)
  1. VOCABRIA [Suspect]
     Active Substance: CABOTEGRAVIR SODIUM
     Indication: Antiretroviral therapy
     Dosage: UNK, Q2M, 600MG
  2. VOCABRIA [Suspect]
     Active Substance: CABOTEGRAVIR SODIUM
  3. VOCABRIA [Suspect]
     Active Substance: CABOTEGRAVIR SODIUM
  4. RILPIVIRINE [Suspect]
     Active Substance: RILPIVIRINE
     Indication: Antiretroviral therapy
     Dosage: UNK, Q2M, 900MG

REACTIONS (6)
  - Neutropenia [Recovering/Resolving]
  - Myelosuppression [Recovered/Resolved]
  - Fear of injection [Recovering/Resolving]
  - Arthralgia [Recovered/Resolved]
  - Benign ethnic neutropenia [Unknown]
  - Condition aggravated [Unknown]

NARRATIVE: CASE EVENT DATE: 20240301
